FAERS Safety Report 19950563 (Version 1)
Quarter: 2021Q4

REPORT INFORMATION
  Report Type: Spontaneous
  Country: US (occurrence: US)
  Receive Date: 20211013
  Receipt Date: 20211013
  Transmission Date: 20220303
  Serious: No
  Sender: FDA-Public Use
  Company Number: 2021A765376

PATIENT
  Age: 71 Year
  Sex: Female
  Weight: 68 kg

DRUGS (1)
  1. CALQUENCE [Suspect]
     Active Substance: ACALABRUTINIB
     Indication: Chronic lymphocytic leukaemia
     Route: 048
     Dates: start: 20210814

REACTIONS (1)
  - Gingival pain [Recovered/Resolved]

NARRATIVE: CASE EVENT DATE: 20210824
